FAERS Safety Report 9564191 (Version 2)
Quarter: 2013Q3

REPORT INFORMATION
  Report Type: Spontaneous
  Country: JP (occurrence: JP)
  Receive Date: 20130930
  Receipt Date: 20130930
  Transmission Date: 20140515
  Serious: Yes (Other)
  Sender: FDA-Public Use
  Company Number: JP-JNJFOC-20130906048

PATIENT
  Age: 6 Year
  Sex: Male

DRUGS (3)
  1. LOPEMIN [Suspect]
     Indication: DIARRHOEA
     Route: 048
     Dates: start: 20130904, end: 20130904
  2. LOPEMIN [Suspect]
     Indication: PRODUCT USED FOR UNKNOWN INDICATION
     Route: 048
  3. LAC-B [Concomitant]
     Indication: DIARRHOEA
     Route: 048
     Dates: start: 20130904, end: 20130904

REACTIONS (2)
  - Hallucination [Recovered/Resolved]
  - Abnormal behaviour [Recovered/Resolved]
